FAERS Safety Report 5064886-2 (Version None)
Quarter: 2006Q3

REPORT INFORMATION
  Report Type: 
  Country: None (occurrence: None)
  Receive Date: 20060725
  Receipt Date: 20060706
  Transmission Date: 20061208
  Serious: Yes (Other)
  Sender: FDA-Public Use
  Company Number: US200606004886

PATIENT
  Age: 65 Year
  Sex: Female
  Weight: 65.8 kg

DRUGS (4)
  1. EVISTA [Suspect]
     Indication: OSTEOPOROSIS
     Dosage: ORAL
     Route: 048
  2. CALCIUM WITH VITAMIN D (CALCIUM PHOSPHATE, CALCIUM SODIUM LACTATE, ERG [Concomitant]
  3. MULTIVITAMIN ^LAPPE^ (VITAMIN NOS) [Concomitant]
  4. HISTORY OF DIAZIDE (GLICLAZIDE) [Concomitant]

REACTIONS (5)
  - AMNESIA [None]
  - BONE DENSITY DECREASED [None]
  - DEAFNESS UNILATERAL [None]
  - HEARING IMPAIRED [None]
  - PHARMACEUTICAL PRODUCT COMPLAINT [None]
